FAERS Safety Report 25540128 (Version 1)
Quarter: 2025Q3

REPORT INFORMATION
  Report Type: Report from Study
  Country: EU (occurrence: EU)
  Receive Date: 20250710
  Receipt Date: 20250710
  Transmission Date: 20251020
  Serious: Yes (Other)
  Sender: AMGEN
  Company Number: EU-AMGEN-ITANI2025081682

PATIENT
  Age: 78 Year
  Sex: Female

DRUGS (3)
  1. BEVACIZUMAB [Suspect]
     Active Substance: BEVACIZUMAB
     Indication: Macular degeneration
     Route: 031
     Dates: start: 20241118, end: 20241118
  2. BEVACIZUMAB [Suspect]
     Active Substance: BEVACIZUMAB
     Route: 031
     Dates: start: 20241216, end: 20241216
  3. BEVACIZUMAB [Suspect]
     Active Substance: BEVACIZUMAB
     Indication: Retinal degeneration
     Dates: start: 20250204, end: 20250204

REACTIONS (3)
  - Therapeutic product effect decreased [Not Recovered/Not Resolved]
  - Retinal oedema [Not Recovered/Not Resolved]
  - Off label use [Unknown]

NARRATIVE: CASE EVENT DATE: 20241118
